FAERS Safety Report 19673400 (Version 1)
Quarter: 2021Q3

REPORT INFORMATION
  Report Type: Spontaneous
  Country: US (occurrence: US)
  Receive Date: 20210806
  Receipt Date: 20210806
  Transmission Date: 20211014
  Serious: No
  Sender: FDA-Public Use
  Company Number: None

PATIENT
  Age: 78 Year
  Sex: Male
  Weight: 85.5 kg

DRUGS (12)
  1. DELTASONE [Concomitant]
     Active Substance: PREDNISONE
  2. MULTIVITAMIN [Concomitant]
     Active Substance: VITAMINS
  3. REGEN?COV [Suspect]
     Active Substance: CASIRIVIMAB\IMDEVIMAB
     Indication: COVID-19 TREATMENT
     Dosage: ?          OTHER FREQUENCY:ONE IV INFUSION;?
     Route: 042
     Dates: start: 20210801, end: 20210801
  4. LISINOPRIL. [Concomitant]
     Active Substance: LISINOPRIL
  5. PROAIR HFA [Concomitant]
     Active Substance: ALBUTEROL SULFATE
  6. TERAZOSIN [Concomitant]
     Active Substance: TERAZOSIN HYDROCHLORIDE
  7. TYLENOL [Concomitant]
     Active Substance: ACETAMINOPHEN
  8. VITAMINS  C, D3 [Concomitant]
  9. METHOTREXATE. [Concomitant]
     Active Substance: METHOTREXATE
  10. XARELTO [Concomitant]
     Active Substance: RIVAROXABAN
  11. ALBUTEROL SULFATE. [Concomitant]
     Active Substance: ALBUTEROL SULFATE
  12. FOLIC ACID. [Concomitant]
     Active Substance: FOLIC ACID

REACTIONS (4)
  - Tremor [None]
  - Confusional state [None]
  - Disorientation [None]
  - Apraxia [None]

NARRATIVE: CASE EVENT DATE: 20210801
